FAERS Safety Report 17192234 (Version 6)
Quarter: 2020Q1

REPORT INFORMATION
  Report Type: Report from Study
  Country: FR (occurrence: FR)
  Receive Date: 20191223
  Receipt Date: 20200312
  Transmission Date: 20200409
  Serious: Yes (Life-Threatening, Hospitalization)
  Sender: FDA-Public Use
  Company Number: FR-EISAI MEDICAL RESEARCH-EC-2019-067552

PATIENT
  Age: 71 Year
  Sex: Male
  Weight: 77 kg

DRUGS (14)
  1. PROPYLEX [Concomitant]
     Active Substance: PROPYLTHIOURACIL
     Dates: start: 20190920
  2. LENVATINIB [Suspect]
     Active Substance: LENVATINIB
     Route: 048
     Dates: start: 20191113, end: 20191204
  3. PEMBROLIZUMAB. [Suspect]
     Active Substance: PEMBROLIZUMAB
     Route: 041
     Dates: start: 20191113, end: 20191113
  4. PEMBROLIZUMAB. [Suspect]
     Active Substance: PEMBROLIZUMAB
     Route: 041
     Dates: start: 20200122
  5. COVERAM [Concomitant]
     Active Substance: AMLODIPINE\PERINDOPRIL
     Dates: start: 20191014
  6. IMOVANE [Concomitant]
     Active Substance: ZOPICLONE
     Dates: start: 20190702
  7. FORTIMEL [Concomitant]
     Active Substance: DIETARY SUPPLEMENT
     Dates: start: 20190913
  8. LEVOTHYROX [Concomitant]
     Active Substance: LEVOTHYROXINE
     Dates: start: 20191014, end: 20191205
  9. XATRAL [Concomitant]
     Active Substance: ALFUZOSIN
     Dates: start: 201906
  10. TOPALGIC [Concomitant]
     Dates: start: 20190805
  11. DEXERYL CREAM [Concomitant]
     Active Substance: GLYCERIN\MINERAL OIL\PETROLATUM
     Dates: start: 20190805
  12. PEMBROLIZUMAB. [Suspect]
     Active Substance: PEMBROLIZUMAB
     Indication: HEPATOCELLULAR CARCINOMA
     Route: 041
     Dates: start: 20190717, end: 20191023
  13. LENVATINIB [Suspect]
     Active Substance: LENVATINIB
     Indication: HEPATOCELLULAR CARCINOMA
     Dosage: STARTED AT: 12 MILLIGRAM; FLUCTUATED DOSES
     Route: 048
     Dates: start: 20190717, end: 20191112
  14. SODIUM BICARBONATE. [Concomitant]
     Active Substance: SODIUM BICARBONATE
     Dates: start: 20190805

REACTIONS (1)
  - Ruptured cerebral aneurysm [Recovered/Resolved]

NARRATIVE: CASE EVENT DATE: 20191113
